FAERS Safety Report 7474588-0 (Version None)
Quarter: 2011Q1

REPORT INFORMATION
  Report Type: 
  Country: None (occurrence: None)
  Receive Date: 20110302
  Receipt Date: 20100707
  Transmission Date: 20110831
  Serious: Yes (Other)
  Sender: FDA-Public Use
  Company Number: 163-21880-10061398

PATIENT
  Age: 79 Year
  Sex: Male

DRUGS (4)
  1. REVLIMID [Suspect]
  2. REVLIMID [Suspect]
     Indication: MULTIPLE MYELOMA
     Dosage: 25 MG, 1 IN 1 D, PO; BI WEEKLY, PO; THREE TIMES A WEEK, PO
     Route: 048
     Dates: start: 20100101
  3. REVLIMID [Suspect]
     Indication: MULTIPLE MYELOMA
     Dosage: 25 MG, 1 IN 1 D, PO; BI WEEKLY, PO; THREE TIMES A WEEK, PO
     Route: 048
     Dates: start: 20100101
  4. REVLIMID [Suspect]
     Indication: MULTIPLE MYELOMA
     Dosage: 25 MG, 1 IN 1 D, PO; BI WEEKLY, PO; THREE TIMES A WEEK, PO
     Route: 048
     Dates: start: 20100101

REACTIONS (8)
  - RASH [None]
  - SINUSITIS [None]
  - URTICARIA [None]
  - UPPER LIMB FRACTURE [None]
  - DRUG INEFFECTIVE [None]
  - BENIGN NEOPLASM OF SKIN [None]
  - COLONIC POLYP [None]
  - FALL [None]
